FAERS Safety Report 6921691-7 (Version None)
Quarter: 2010Q3

REPORT INFORMATION
  Report Type: 
  Country: None (occurrence: None)
  Receive Date: 20100812
  Receipt Date: 20100804
  Transmission Date: 20110219
  Serious: Yes (Other)
  Sender: FDA-Public Use
  Company Number: US-JNJFOC-20100700639

PATIENT
  Sex: Male
  Weight: 12.7 kg

DRUGS (2)
  1. CHILDREN'S TYLENOL SUSPENSION [Suspect]
     Indication: PYREXIA
     Dosage: AS DIRECTED ON BOTTLE
     Route: 065
  2. CHILDREN'S TYLENOL SUSPENSION [Suspect]
     Route: 065

REACTIONS (4)
  - DRUG INEFFECTIVE [None]
  - GRAND MAL CONVULSION [None]
  - PRODUCT QUALITY ISSUE [None]
  - WRONG DRUG ADMINISTERED [None]
